FAERS Safety Report 7285759-0 (Version None)
Quarter: 2011Q1

REPORT INFORMATION
  Report Type: 
  Country: None (occurrence: None)
  Receive Date: 20110210
  Receipt Date: 20110131
  Transmission Date: 20110831
  Serious: Yes (Hospitalization, Other)
  Sender: FDA-Public Use
  Company Number: BR-ELI_LILLY_AND_COMPANY-BR201010004006

PATIENT
  Age: 36 Year
  Sex: Male

DRUGS (1)
  1. HUMALOG MIX 50/50 [Suspect]
     Indication: DIABETES MELLITUS
     Dosage: UNK, UNKNOWN
     Route: 065

REACTIONS (9)
  - ATROPHY [None]
  - BLOOD GLUCOSE INCREASED [None]
  - AMPUTATION [None]
  - WOUND [None]
  - PERIPHERAL VASCULAR DISORDER [None]
  - TOE AMPUTATION [None]
  - FOOT DEFORMITY [None]
  - DIABETES MELLITUS [None]
  - HYPOGLYCAEMIA [None]
